FAERS Safety Report 12391318 (Version 3)
Quarter: 2016Q2

REPORT INFORMATION
  Report Type: Report from Study
  Country: US (occurrence: US)
  Receive Date: 20160520
  Receipt Date: 20160621
  Transmission Date: 20160815
  Serious: Yes (Hospitalization, Other)
  Sender: FDA-Public Use
  Company Number: US-BRISTOL-MYERS SQUIBB COMPANY-BMS-2016-032563

PATIENT
  Age: 79 Year
  Sex: Male
  Weight: 70.3 kg

DRUGS (2)
  1. NIVOLUMAB [Suspect]
     Active Substance: NIVOLUMAB
     Indication: SQUAMOUS CELL CARCINOMA OF LUNG
     Dosage: 3 MG/KG, Q2WK 214MG
     Route: 042
     Dates: start: 20160323, end: 20160418
  2. IPILIMUMAB [Suspect]
     Active Substance: IPILIMUMAB
     Indication: SQUAMOUS CELL CARCINOMA OF LUNG
     Dosage: 71.2 MG  UNK
     Route: 042
     Dates: start: 20160323, end: 20160418

REACTIONS (9)
  - Blood bilirubin increased [Recovered/Resolved]
  - Aspartate aminotransferase increased [Recovered/Resolved]
  - Tracheobronchitis [Recovering/Resolving]
  - Pneumonitis [Recovering/Resolving]
  - Hyponatraemia [Recovering/Resolving]
  - Autoimmune hepatitis [Recovering/Resolving]
  - Alanine aminotransferase increased [Not Recovered/Not Resolved]
  - Blood alkaline phosphatase increased [Recovered/Resolved]
  - Mucosal infection [Not Recovered/Not Resolved]

NARRATIVE: CASE EVENT DATE: 20160415
